FAERS Safety Report 13950627 (Version 1)
Quarter: 2017Q3

REPORT INFORMATION
  Report Type: Spontaneous
  Country: US (occurrence: US)
  Receive Date: 20170908
  Receipt Date: 20170908
  Transmission Date: 20171128
  Serious: Yes (Hospitalization)
  Sender: FDA-Public Use
  Company Number: US-ROCHE-1133012

PATIENT
  Sex: Female

DRUGS (2)
  1. TYLENOL [Concomitant]
     Active Substance: ACETAMINOPHEN
  2. RITUXAN [Suspect]
     Active Substance: RITUXIMAB
     Indication: CHRONIC LYMPHOCYTIC LEUKAEMIA
     Dosage: DOSE ADMINISTERED:700
     Route: 065
     Dates: start: 19980906

REACTIONS (11)
  - Hypoaesthesia oral [Unknown]
  - Pain in extremity [Unknown]
  - Chills [Unknown]
  - Urinary tract infection [Unknown]
  - Cough [Unknown]
  - Pyrexia [Unknown]
  - Dysuria [Unknown]
  - Nausea [Unknown]
  - Fatigue [Unknown]
  - Malaise [Unknown]
  - Hypoaesthesia [Unknown]
